FAERS Safety Report 5277483-0 (Version None)
Quarter: 2007Q1

REPORT INFORMATION
  Report Type: 
  Country: None (occurrence: None)
  Receive Date: 20070327
  Receipt Date: 20070320
  Transmission Date: 20070707
  Serious: Yes (Other)
  Sender: FDA-Public Use
  Company Number: BR-JNJFOC-20070305050

PATIENT
  Sex: Female

DRUGS (1)
  1. ACETAMINOPHEN W/ CODEINE [Suspect]
     Indication: DRUG USE FOR UNKNOWN INDICATION

REACTIONS (4)
  - DIZZINESS [None]
  - EPISTAXIS [None]
  - HEADACHE [None]
  - VOMITING [None]
